FAERS Safety Report 7132844-X (Version None)
Quarter: 2010Q4

REPORT INFORMATION
  Report Type: 
  Country: None (occurrence: None)
  Receive Date: 20101202
  Receipt Date: 20101122
  Transmission Date: 20110411
  Serious: No
  Sender: FDA-Public Use
  Company Number: US-PFIZER INC-2010155736

PATIENT

DRUGS (1)
  1. ELETRIPTAN HYDROBROMIDE [Suspect]
     Dosage: UNK

REACTIONS (1)
  - DIZZINESS [None]
